FAERS Safety Report 6419197-7 (Version None)
Quarter: 2009Q4

REPORT INFORMATION
  Report Type: 
  Country: None (occurrence: None)
  Receive Date: 20091028
  Receipt Date: 20091028
  Transmission Date: 20100525
  Serious: Yes (Hospitalization, Other)
  Sender: FDA-Public Use
  Company Number: None

PATIENT
  Age: 51 Year
  Sex: Female
  Weight: 72.5755 kg

DRUGS (1)
  1. AMRIX [Suspect]
     Indication: HYPOTONIA
     Dosage: I TABLET 6HOURS BEFORE BED PO
     Route: 048
     Dates: start: 20091024, end: 20091024

REACTIONS (11)
  - ABDOMINAL PAIN [None]
  - CHILLS [None]
  - EATING DISORDER [None]
  - EYE PAIN [None]
  - HEADACHE [None]
  - MALAISE [None]
  - OROPHARYNGEAL PAIN [None]
  - PHOTOPHOBIA [None]
  - RASH [None]
  - RHINORRHOEA [None]
  - SOMNOLENCE [None]
